FAERS Safety Report 10790696 (Version 1)
Quarter: 2015Q1

REPORT INFORMATION
  Report Type: Report from Study
  Country: DE (occurrence: DE)
  Receive Date: 20150212
  Receipt Date: 20150212
  Transmission Date: 20150721
  Serious: Yes (Hospitalization)
  Sender: FDA-Public Use
  Company Number: DE-UCBSA-2015003731

PATIENT
  Sex: Male

DRUGS (4)
  1. CERTOLIZUMAB PEGOL RA [Suspect]
     Active Substance: CERTOLIZUMAB PEGOL
     Indication: RHEUMATOID ARTHRITIS
     Dosage: STRENGTH: 400 MG
     Dates: start: 201203, end: 2012
  2. METHOTREXATE [Concomitant]
     Active Substance: METHOTREXATE
     Dosage: STRENGTH: 20 MG
     Dates: start: 2013
  3. CERTOLIZUMAB PEGOL RA [Suspect]
     Active Substance: CERTOLIZUMAB PEGOL
     Dosage: STRENGTH: 200 MG
     Dates: start: 2012, end: 201210
  4. METHOTREXATE [Concomitant]
     Active Substance: METHOTREXATE
     Indication: RHEUMATOID ARTHRITIS
     Dosage: STRENGTH: 15 MG
     Dates: end: 2013

REACTIONS (2)
  - Colon cancer stage 0 [Unknown]
  - Pulmonary mass [Unknown]

NARRATIVE: CASE EVENT DATE: 20130915
